FAERS Safety Report 10229734 (Version 1)
Quarter: 2014Q2

REPORT INFORMATION
  Report Type: Spontaneous
  Country: GB (occurrence: GB)
  Receive Date: 20140611
  Receipt Date: 20140611
  Transmission Date: 20141212
  Serious: Yes (Other)
  Sender: FDA-Public Use
  Company Number: PHFR2014GB004072

PATIENT
  Age: 66 Year
  Sex: Male

DRUGS (2)
  1. CLOZARIL [Suspect]
     Dosage: UNK
     Route: 048
     Dates: start: 20060202
  2. CLOZARIL [Suspect]
     Dosage: UNK
     Route: 048
     Dates: start: 20140602

REACTIONS (5)
  - Urinary tract infection [Unknown]
  - White blood cell count increased [Unknown]
  - Neutrophil count increased [Unknown]
  - General physical condition abnormal [Not Recovered/Not Resolved]
  - Constipation [Unknown]
